FAERS Safety Report 5545293-2 (Version None)
Quarter: 2007Q4

REPORT INFORMATION
  Report Type: 
  Country: None (occurrence: None)
  Receive Date: 20071211
  Receipt Date: 20071203
  Transmission Date: 20080405
  Serious: Yes (Other)
  Sender: FDA-Public Use
  Company Number: PHBS2007BR20278

PATIENT
  Age: 45 Year
  Sex: Female
  Weight: 49 kg

DRUGS (5)
  1. TRILEPTAL [Suspect]
     Indication: EPILEPSY
     Dosage: 300 MG, QD
     Route: 048
     Dates: start: 20050101
  2. VALPROIC ACID [Concomitant]
     Indication: EPILEPSY
     Dosage: 500 MG, BID
     Route: 048
     Dates: start: 19990101
  3. LAMOTRIGINE [Concomitant]
     Indication: EPILEPSY
     Dosage: 50 MG, QD MORNING
     Route: 048
     Dates: start: 19990101
  4. LAMOTRIGINE [Concomitant]
     Dosage: 100 MG, QD NIGHT
     Dates: start: 19990101
  5. TEGRETOL [Concomitant]
     Indication: EPILEPSY
     Dosage: 1 TAB MORNING/1 TAB NIGHT
     Route: 048
     Dates: start: 19990101

REACTIONS (2)
  - NERVOUS SYSTEM DISORDER [None]
  - WEIGHT DECREASED [None]
